FAERS Safety Report 11348691 (Version 1)
Quarter: 2015Q3

REPORT INFORMATION
  Report Type: Spontaneous
  Country: BR (occurrence: BR)
  Receive Date: 20150806
  Receipt Date: 20150806
  Transmission Date: 20151125
  Serious: Yes (Hospitalization, Other)
  Sender: FDA-Public Use
  Company Number: BR-BAUSCH-BL-2015-018345

PATIENT
  Age: 64 Year
  Sex: Female
  Weight: 73 kg

DRUGS (3)
  1. TIMOPTOL [Suspect]
     Active Substance: TIMOLOL
     Indication: GLAUCOMA
     Dosage: 1 DROP IN EACH EYE
     Route: 047
     Dates: start: 2011
  2. EUTHIROX [Concomitant]
     Indication: HYPOTHYROIDISM
     Dates: start: 2007
  3. TIMOPTOL [Suspect]
     Active Substance: TIMOLOL
     Indication: INTRAOCULAR PRESSURE INCREASED

REACTIONS (5)
  - Gallbladder disorder [Recovered/Resolved]
  - Gastrointestinal disorder [Recovered/Resolved]
  - Uterine cancer [Recovered/Resolved]
  - Thrombosis [Not Recovered/Not Resolved]
  - Dengue fever [Recovered/Resolved]

NARRATIVE: CASE EVENT DATE: 2012
